FAERS Safety Report 13563080 (Version 1)
Quarter: 2017Q2

REPORT INFORMATION
  Report Type: Spontaneous
  Country: US (occurrence: US)
  Receive Date: 20170518
  Receipt Date: 20170518
  Transmission Date: 20170830
  Serious: Yes (Hospitalization)
  Sender: FDA-Public Use
  Company Number: None

PATIENT
  Age: 87 Year
  Sex: Male
  Weight: 216.4 kg

DRUGS (1)
  1. CARFILZOMIB [Suspect]
     Active Substance: CARFILZOMIB
     Indication: PROSTATE CANCER
     Dosage: 56 MG/M2 (123.2MG) 2DAYS Q WEEK IV
     Route: 042
     Dates: start: 20170315, end: 20170517

REACTIONS (8)
  - Pulmonary oedema [None]
  - Pneumonia [None]
  - Cardiac failure [None]
  - Abasia [None]
  - Cardiac failure congestive [None]
  - Dizziness [None]
  - Lung infection [None]
  - Malaise [None]

NARRATIVE: CASE EVENT DATE: 20170518
